FAERS Safety Report 8071843-0 (Version None)
Quarter: 2012Q1

REPORT INFORMATION
  Report Type: 
  Country: None (occurrence: None)
  Receive Date: 20120126
  Receipt Date: 20120117
  Transmission Date: 20120608
  Serious: No
  Sender: FDA-Public Use
  Company Number: US-BIOGENIDEC-2012BI002221

PATIENT
  Sex: Male

DRUGS (4)
  1. TYSABRI [Suspect]
     Indication: MULTIPLE SCLEROSIS
     Route: 042
     Dates: start: 20080326, end: 20110217
  2. TYSABRI [Suspect]
     Route: 042
     Dates: start: 20110811
  3. PROZAC [Concomitant]
     Indication: DEPRESSION
     Dates: start: 20110601
  4. PROZAC [Concomitant]
     Indication: COGNITIVE DISORDER
     Dates: start: 20110601

REACTIONS (7)
  - URINARY RETENTION [None]
  - BLOOD URINE PRESENT [None]
  - URINARY TRACT INFECTION [None]
  - COGNITIVE DISORDER [None]
  - MICTURITION URGENCY [None]
  - POLLAKIURIA [None]
  - GENERAL PHYSICAL HEALTH DETERIORATION [None]
